FAERS Safety Report 6468094-X (Version None)
Quarter: 2009Q4

REPORT INFORMATION
  Report Type: 
  Country: None (occurrence: None)
  Receive Date: 20091202
  Receipt Date: 20091125
  Transmission Date: 20100525
  Serious: Yes (Hospitalization)
  Sender: FDA-Public Use
  Company Number: CA-ABBOTT-09P-028-0608454-00

PATIENT
  Sex: Female
  Weight: 90.8 kg

DRUGS (8)
  1. HUMIRA [Suspect]
     Indication: PSORIASIS
     Route: 058
     Dates: start: 20090630, end: 20090630
  2. HUMIRA [Suspect]
     Route: 058
  3. HYZAAR [Concomitant]
     Indication: DRUG USE FOR UNKNOWN INDICATION
     Dosage: 25 MG 1 CO QD
  4. HUMALOG [Concomitant]
     Indication: DRUG USE FOR UNKNOWN INDICATION
     Dosage: 8 UNITS AC
  5. NPH INSULIN [Concomitant]
     Indication: DRUG USE FOR UNKNOWN INDICATION
     Dosage: 40 UNITS AT BEDTIME
  6. PANTOPRAZOLE [Concomitant]
     Indication: DRUG USE FOR UNKNOWN INDICATION
     Dosage: QD
  7. DILTIAZEM [Concomitant]
     Indication: DRUG USE FOR UNKNOWN INDICATION
     Dosage: 180 MG 2 TABS QD
  8. VITAMINE D [Concomitant]
     Indication: DRUG USE FOR UNKNOWN INDICATION
     Dosage: QD

REACTIONS (5)
  - BREAKTHROUGH PAIN [None]
  - HAEMARTHROSIS [None]
  - LIMB CRUSHING INJURY [None]
  - MUSCULOSKELETAL PAIN [None]
  - PAIN [None]
